FAERS Safety Report 15705403 (Version 1)
Quarter: 2018Q4

REPORT INFORMATION
  Report Type: Report from Study
  Country: ES (occurrence: ES)
  Receive Date: 20181210
  Receipt Date: 20181210
  Transmission Date: 20190205
  Serious: Yes (Life-Threatening, Hospitalization)
  Sender: FDA-Public Use
  Company Number: ES-PFIZER INC-2018505810

PATIENT
  Age: 7 Year
  Sex: Female
  Weight: 36.3 kg

DRUGS (12)
  1. CEFTAZIDIME. [Concomitant]
     Active Substance: CEFTAZIDIME
     Dosage: 1800 MG, 3X/DAY
     Route: 042
     Dates: start: 20171219, end: 20171226
  2. ERWINAZE [Suspect]
     Active Substance: ASPARAGINASE ERWINIA CHRYSANTHEMI
     Indication: ACUTE LYMPHOCYTIC LEUKAEMIA
     Dosage: 22.4 IU/KG, WEEKLY
     Route: 030
     Dates: start: 20171129, end: 20171226
  3. COLECALCIFEROL [Concomitant]
     Active Substance: CHOLECALCIFEROL
     Dosage: 1200 IU, 1X/DAY
     Route: 048
     Dates: start: 20171215, end: 20180129
  4. FOSCARNET SODIUM. [Concomitant]
     Active Substance: FOSCARNET SODIUM
     Dosage: 2200 MG, 3X/DAY
     Route: 042
     Dates: start: 20171212, end: 20171213
  5. DEXAMETHASONE. [Suspect]
     Active Substance: DEXAMETHASONE
     Indication: ACUTE LYMPHOCYTIC LEUKAEMIA
     Dosage: 11 MG, 2X/DAY
     Route: 042
     Dates: start: 20171220, end: 20171225
  6. VINCRISTINE SULFATE. [Suspect]
     Active Substance: VINCRISTINE SULFATE
     Indication: ACUTE LYMPHOCYTIC LEUKAEMIA
     Dosage: 1.7 MG, 1X/DAY
     Route: 042
     Dates: start: 20171222, end: 20171222
  7. ACYCLOVIR [ACICLOVIR] [Concomitant]
     Active Substance: ACYCLOVIR
     Indication: PROPHYLAXIS
     Dosage: 300 MG, 3X/DAY
     Route: 048
     Dates: start: 20171211, end: 20180103
  8. VANCOMYCIN [Concomitant]
     Active Substance: VANCOMYCIN
     Dosage: 350 MG, 4X/DAY
     Route: 042
     Dates: start: 20171211, end: 20171215
  9. SEPTRIN [Concomitant]
     Active Substance: SULFAMETHOXAZOLE\TRIMETHOPRIM
     Indication: PROPHYLAXIS
     Dosage: 1 DF, 2X/DAY
     Route: 048
     Dates: start: 20171211, end: 20180129
  10. LEVOFLOXACIN. [Concomitant]
     Active Substance: LEVOFLOXACIN
     Dosage: 370 MG, 1X/DAY
     Route: 042
     Dates: start: 20171212, end: 20171219
  11. AMBISOME [Concomitant]
     Active Substance: AMPHOTERICIN B
     Dosage: 110 MG, 1X/DAY
     Route: 042
     Dates: start: 20171211, end: 20180129
  12. MEROPENEM. [Concomitant]
     Active Substance: MEROPENEM
     Dosage: 1400 MG, 3X/DAY
     Route: 042
     Dates: start: 20171211, end: 20171212

REACTIONS (1)
  - Septic shock [Recovered/Resolved]

NARRATIVE: CASE EVENT DATE: 20171226
